FAERS Safety Report 6545778-6 (Version None)
Quarter: 2010Q1

REPORT INFORMATION
  Report Type: 
  Country: None (occurrence: None)
  Receive Date: 20100114
  Receipt Date: 20090930
  Transmission Date: 20100710
  Serious: No
  Sender: FDA-Public Use
  Company Number: 2009BM000247

PATIENT
  Age: 4 Year
  Sex: Male
  Weight: 18.1439 kg

DRUGS (2)
  1. KUVAN [Suspect]
     Indication: PHENYLKETONURIA
     Dosage: 200 MG;QD;PO ; 400 MG;QD;PO
     Route: 048
     Dates: start: 20090911, end: 20091007
  2. KUVAN [Suspect]
     Indication: PHENYLKETONURIA
     Dosage: 200 MG;QD;PO ; 400 MG;QD;PO
     Route: 048
     Dates: start: 20091008

REACTIONS (3)
  - AGGRESSION [None]
  - DISTURBANCE IN ATTENTION [None]
  - PSYCHOMOTOR HYPERACTIVITY [None]
